FAERS Safety Report 24106506 (Version 3)
Quarter: 2024Q3

REPORT INFORMATION
  Report Type: Report from Study
  Country: US (occurrence: US)
  Receive Date: 20240717
  Receipt Date: 20240823
  Transmission Date: 20241017
  Serious: Yes (Hospitalization, Other)
  Sender: AEGERION
  Company Number: US-AMRYT PHARMACEUTICALS DAC-AEGR007251

PATIENT
  Sex: Male
  Weight: 80.3 kg

DRUGS (73)
  1. METRELEPTIN [Suspect]
     Active Substance: METRELEPTIN
     Indication: Acquired generalised lipodystrophy
     Dosage: 2.5 MILLIGRAM, QD
     Route: 058
     Dates: start: 20160613, end: 20160619
  2. METRELEPTIN [Suspect]
     Active Substance: METRELEPTIN
     Dosage: 2.75 MILLIGRAM, QD
     Route: 058
     Dates: start: 20160620, end: 20160626
  3. METRELEPTIN [Suspect]
     Active Substance: METRELEPTIN
     Dosage: 3.0 MILLIGRAM, QD
     Route: 058
     Dates: start: 20160627, end: 20160704
  4. METRELEPTIN [Suspect]
     Active Substance: METRELEPTIN
     Dosage: 3.25 MILLIGRAM, QD
     Route: 058
     Dates: start: 20160704, end: 20160710
  5. METRELEPTIN [Suspect]
     Active Substance: METRELEPTIN
     Dosage: 3.5 MILLIGRAM, QD
     Route: 058
     Dates: start: 20160711, end: 20160717
  6. METRELEPTIN [Suspect]
     Active Substance: METRELEPTIN
     Dosage: 3.75 MILLIGRAM, QD
     Route: 058
     Dates: start: 20160718, end: 20160724
  7. METRELEPTIN [Suspect]
     Active Substance: METRELEPTIN
     Dosage: 4.00 MILLIGRAM, QD
     Route: 058
     Dates: start: 20160725, end: 20160731
  8. METRELEPTIN [Suspect]
     Active Substance: METRELEPTIN
     Dosage: 4.25 MILLIGRAM, QD
     Route: 058
     Dates: start: 20160801, end: 20160807
  9. METRELEPTIN [Suspect]
     Active Substance: METRELEPTIN
     Dosage: 4.5 MILLIGRAM, QD
     Route: 058
     Dates: start: 20160808, end: 20160814
  10. METRELEPTIN [Suspect]
     Active Substance: METRELEPTIN
     Dosage: 4.75 MILLIGRAM, QD
     Route: 058
     Dates: start: 20160815, end: 20160821
  11. METRELEPTIN [Suspect]
     Active Substance: METRELEPTIN
     Dosage: 5 MILLIGRAM, QD
     Route: 058
     Dates: start: 20160822, end: 20160828
  12. METRELEPTIN [Suspect]
     Active Substance: METRELEPTIN
     Dosage: 5.25 MILLIGRAM, QD
     Route: 058
     Dates: start: 20160829, end: 20160904
  13. METRELEPTIN [Suspect]
     Active Substance: METRELEPTIN
     Dosage: 5.5 MILLIGRAM, QD
     Route: 058
     Dates: start: 20160905, end: 20160911
  14. METRELEPTIN [Suspect]
     Active Substance: METRELEPTIN
     Dosage: 5.75 MILLIGRAM, QD
     Route: 058
     Dates: start: 20160912, end: 20160918
  15. METRELEPTIN [Suspect]
     Active Substance: METRELEPTIN
     Dosage: 6 MILLIGRAM, QD
     Route: 058
     Dates: start: 20160919, end: 20160925
  16. METRELEPTIN [Suspect]
     Active Substance: METRELEPTIN
     Dosage: 6.25 MILLIGRAM, QD
     Route: 058
     Dates: start: 20160926, end: 20161002
  17. METRELEPTIN [Suspect]
     Active Substance: METRELEPTIN
     Dosage: 6.5 MILLIGRAM, QD
     Route: 058
     Dates: start: 20161003, end: 20161009
  18. METRELEPTIN [Suspect]
     Active Substance: METRELEPTIN
     Dosage: 6.75 MILLIGRAM, QD
     Route: 058
     Dates: start: 20161010, end: 20161016
  19. METRELEPTIN [Suspect]
     Active Substance: METRELEPTIN
     Dosage: 7 MILLIGRAM, QD
     Route: 058
     Dates: start: 20161017, end: 20161023
  20. METRELEPTIN [Suspect]
     Active Substance: METRELEPTIN
     Dosage: 7.25 MILLIGRAM, QD
     Route: 058
     Dates: start: 20161024, end: 20161030
  21. METRELEPTIN [Suspect]
     Active Substance: METRELEPTIN
     Dosage: 7.5 MILLIGRAM, QD
     Route: 058
     Dates: start: 20161031, end: 20161106
  22. METRELEPTIN [Suspect]
     Active Substance: METRELEPTIN
     Dosage: 7.75 MILLIGRAM, QD
     Route: 058
     Dates: start: 20161107, end: 20161113
  23. METRELEPTIN [Suspect]
     Active Substance: METRELEPTIN
     Dosage: 8 MILLIGRAM, QD
     Route: 058
     Dates: start: 20161114, end: 20161120
  24. METRELEPTIN [Suspect]
     Active Substance: METRELEPTIN
     Dosage: 8.25 MILLIGRAM, QD
     Route: 058
     Dates: start: 20161121, end: 20161127
  25. METRELEPTIN [Suspect]
     Active Substance: METRELEPTIN
     Dosage: 8.5 MILLIGRAM, QD
     Route: 058
     Dates: start: 20161128, end: 20161204
  26. METRELEPTIN [Suspect]
     Active Substance: METRELEPTIN
     Dosage: 8.75 MILLIGRAM, QD
     Route: 058
     Dates: start: 20161205, end: 20161211
  27. METRELEPTIN [Suspect]
     Active Substance: METRELEPTIN
     Dosage: 9 MILLIGRAM, QD
     Route: 058
     Dates: start: 20161212, end: 20161218
  28. METRELEPTIN [Suspect]
     Active Substance: METRELEPTIN
     Dosage: 9.25 MILLIGRAM, QD
     Route: 058
     Dates: start: 20161219, end: 20161221
  29. METRELEPTIN [Suspect]
     Active Substance: METRELEPTIN
     Dosage: 5 MILLIGRAM, QD
     Route: 058
     Dates: start: 20161222, end: 20201202
  30. METRELEPTIN [Suspect]
     Active Substance: METRELEPTIN
     Dosage: 5 MILLIGRAM, QOD
     Route: 058
     Dates: start: 20201208
  31. SPIRONOLACTONE [Concomitant]
     Active Substance: SPIRONOLACTONE
     Indication: Oedema peripheral
     Dosage: 25 MILLIGRAM, BID
     Route: 048
     Dates: start: 20190108, end: 20190131
  32. SPIRONOLACTONE [Concomitant]
     Active Substance: SPIRONOLACTONE
     Indication: Hypertension
     Dosage: 25 MILLIGRAM, QD
     Route: 048
     Dates: start: 20190612, end: 20201202
  33. SPIRONOLACTONE [Concomitant]
     Active Substance: SPIRONOLACTONE
     Indication: Cardiac failure
     Dosage: 25 MILLIGRAM, QD
     Route: 048
     Dates: start: 20210123, end: 20211026
  34. SPIRONOLACTONE [Concomitant]
     Active Substance: SPIRONOLACTONE
     Indication: Immunomodulatory therapy
     Dosage: 12.5 MILLIGRAM, QD
     Route: 048
     Dates: start: 20211029, end: 20211030
  35. SPIRONOLACTONE [Concomitant]
     Active Substance: SPIRONOLACTONE
     Dosage: 25 MILLIGRAM, BID
     Route: 048
     Dates: start: 20211031, end: 20211031
  36. SPIRONOLACTONE [Concomitant]
     Active Substance: SPIRONOLACTONE
     Dosage: 25 MILLIGRAM, MON, WED, FRI
     Route: 048
     Dates: start: 20220126, end: 20240425
  37. ASPIRIN [Concomitant]
     Active Substance: ASPIRIN
     Indication: Cardiac failure congestive
     Dosage: 81 MILLIGRAM, QD
     Route: 048
     Dates: start: 20180315, end: 20210823
  38. AZATHIOPRINE [Concomitant]
     Active Substance: AZATHIOPRINE
     Indication: Immunosuppression
     Dosage: 100 MILLIGRAM, QD
     Route: 048
     Dates: start: 20190829, end: 20201204
  39. AZATHIOPRINE [Concomitant]
     Active Substance: AZATHIOPRINE
     Dosage: 50 MILLIGRAM, QD
     Route: 048
     Dates: start: 20190725, end: 20190828
  40. AZATHIOPRINE [Concomitant]
     Active Substance: AZATHIOPRINE
     Dosage: 50 MILLIGRAM, QD
     Route: 048
     Dates: start: 20201205, end: 20210324
  41. AZATHIOPRINE [Concomitant]
     Active Substance: AZATHIOPRINE
     Dosage: 100 MILLIGRAM, QD
     Route: 048
     Dates: start: 20210325, end: 20220921
  42. AZATHIOPRINE [Concomitant]
     Active Substance: AZATHIOPRINE
     Dosage: 75 MILLIGRAM, QD
     Route: 048
     Dates: start: 20220921, end: 20230509
  43. AZATHIOPRINE [Concomitant]
     Active Substance: AZATHIOPRINE
     Dosage: 100 MILLIGRAM, QD
     Route: 048
     Dates: start: 20230509
  44. WARFARIN [Concomitant]
     Active Substance: WARFARIN
     Indication: Atrial fibrillation
     Dosage: 7.5 MILLIGRAM, QD
     Route: 048
     Dates: start: 20180315, end: 20180827
  45. WARFARIN [Concomitant]
     Active Substance: WARFARIN
     Dosage: 5 MILLIGRAM, 6 X WEEK
     Route: 048
     Dates: start: 20180828, end: 20201102
  46. WARFARIN [Concomitant]
     Active Substance: WARFARIN
     Dosage: 7.5 MILLIGRAM, 1 X WEEK
     Route: 048
     Dates: start: 20180828, end: 20201102
  47. WARFARIN [Concomitant]
     Active Substance: WARFARIN
     Dosage: 5 MILLIGRAM, QD
     Route: 048
     Dates: start: 20201103, end: 20201202
  48. WARFARIN [Concomitant]
     Active Substance: WARFARIN
     Dosage: 5 MILLIGRAM, 5X WEEK
     Route: 048
     Dates: start: 20201229, end: 20210123
  49. WARFARIN [Concomitant]
     Active Substance: WARFARIN
     Dosage: 5 MILLIGRAM, 2XWEEK
     Route: 048
     Dates: start: 20201229, end: 20210123
  50. WARFARIN [Concomitant]
     Active Substance: WARFARIN
     Dosage: 5 MILLIGRAM, 4 X WEEK
     Route: 048
     Dates: start: 20201205, end: 20201228
  51. WARFARIN [Concomitant]
     Active Substance: WARFARIN
     Dosage: 2.5 MILLIGRAM, 3 X WEEK
     Route: 048
     Dates: start: 20201205, end: 20201228
  52. WARFARIN [Concomitant]
     Active Substance: WARFARIN
     Dosage: 6 MILLIGRAM, QD
     Dates: start: 20210124, end: 20211025
  53. WARFARIN [Concomitant]
     Active Substance: WARFARIN
     Dosage: 2 MILLIGRAM, SINGLE
     Route: 048
     Dates: start: 20211029, end: 20211029
  54. WARFARIN [Concomitant]
     Active Substance: WARFARIN
     Dosage: 7.5 MILLIGRAM, QD
     Route: 048
     Dates: start: 20211029, end: 20211101
  55. WARFARIN [Concomitant]
     Active Substance: WARFARIN
     Dosage: 5 MILLIGRAM, MONDAY WEEKLY
     Route: 048
     Dates: start: 20211108, end: 20220106
  56. WARFARIN [Concomitant]
     Active Substance: WARFARIN
     Dosage: 7.5 MILLIGRAM, 6 TIMES A WEEK
     Route: 048
     Dates: start: 20211102, end: 20211102
  57. WARFARIN [Concomitant]
     Active Substance: WARFARIN
     Dosage: 2.5 MILLIGRAM, TUES AND SAT
     Route: 048
     Dates: start: 20210106, end: 20240427
  58. WARFARIN [Concomitant]
     Active Substance: WARFARIN
     Dosage: 5 MILLIGRAM, 6 X WEEK
     Route: 048
     Dates: start: 20180828, end: 20201102
  59. WARFARIN [Concomitant]
     Active Substance: WARFARIN
     Dosage: 5 MILLIGRAM, SUN, MON, WED, THURS, FRI
     Route: 048
     Dates: start: 20220106, end: 20240427
  60. FISH OIL\OMEGA-3 FATTY ACIDS [Concomitant]
     Active Substance: FISH OIL\OMEGA-3 FATTY ACIDS
     Indication: Hypertriglyceridaemia
     Dosage: 1 GRAM, QD
     Route: 048
     Dates: start: 2017
  61. GLUCAGON [Concomitant]
     Active Substance: GLUCAGON\GLUCAGON HYDROCHLORIDE\WATER
     Indication: Hypoglycaemia
     Dosage: 1 MILLIGRAM, PRN
     Route: 058
  62. HUMULIN R [Concomitant]
     Active Substance: INSULIN HUMAN
     Indication: Diabetes mellitus
     Dosage: 0.6 UNITS /HR , QD VIA CONTINOUS PUMP
     Route: 058
  63. VALSARTAN [Concomitant]
     Active Substance: VALSARTAN
     Indication: Cardiac failure congestive
     Dosage: 40 MILLIGRAM, QD
     Route: 048
     Dates: start: 20210123, end: 20211021
  64. VALSARTAN [Concomitant]
     Active Substance: VALSARTAN
     Indication: Hypertension
     Dosage: 80 MILLIGRAM, BID
     Route: 048
     Dates: start: 20221022, end: 20230115
  65. VALSARTAN [Concomitant]
     Active Substance: VALSARTAN
     Dosage: 80 MILLIGRAM, BID
     Route: 048
     Dates: start: 20231117, end: 20240426
  66. GABAPENTIN [Concomitant]
     Active Substance: GABAPENTIN
     Indication: Neuropathy peripheral
     Dosage: 300 MILLIGRAM, PRN
     Route: 048
     Dates: start: 20210107, end: 20210528
  67. GABAPENTIN [Concomitant]
     Active Substance: GABAPENTIN
     Dosage: 300 MILLIGRAM, QD
     Route: 048
     Dates: start: 20211027, end: 20211027
  68. GABAPENTIN [Concomitant]
     Active Substance: GABAPENTIN
     Dosage: 400 MILLIGRAM, QD
     Route: 048
     Dates: start: 20220519
  69. DULOXETINE [Concomitant]
     Active Substance: DULOXETINE
     Indication: Restless legs syndrome
     Dosage: 20 MILLIGRAM, QD
     Route: 048
     Dates: start: 20220519, end: 20220612
  70. DULOXETINE [Concomitant]
     Active Substance: DULOXETINE
     Dosage: 40 MILLIGRAM, QD
     Route: 048
     Dates: start: 20220613, end: 20231117
  71. DULOXETINE [Concomitant]
     Active Substance: DULOXETINE
     Dosage: 40 MILLIGRAM, BID
     Route: 048
     Dates: start: 20231117
  72. TORSEMIDE [Concomitant]
     Active Substance: TORSEMIDE
     Indication: Cardiac failure congestive
     Dosage: 80 MILLIGRAM, QD
     Route: 048
     Dates: start: 202202
  73. MAGNESIUM [Concomitant]
     Active Substance: MAGNESIUM
     Indication: Blood magnesium decreased
     Dosage: 400 MILLIGRAM, QD
     Route: 048
     Dates: start: 20200325

REACTIONS (10)
  - Hepatic enzyme increased [Not Recovered/Not Resolved]
  - Left ventricular failure [Recovered/Resolved with Sequelae]
  - Left ventricular failure [Recovered/Resolved with Sequelae]
  - Left ventricular failure [Recovered/Resolved with Sequelae]
  - Acute kidney injury [Recovered/Resolved with Sequelae]
  - Acute kidney injury [Recovered/Resolved with Sequelae]
  - Sleep disorder [Not Recovered/Not Resolved]
  - Abdominal wall mass [Not Recovered/Not Resolved]
  - Constipation [Not Recovered/Not Resolved]
  - Arthralgia [Not Recovered/Not Resolved]

NARRATIVE: CASE EVENT DATE: 20240101
